FAERS Safety Report 6943704-9 (Version None)
Quarter: 2010Q3

REPORT INFORMATION
  Report Type: 
  Country: None (occurrence: None)
  Receive Date: 20100826
  Receipt Date: 20100818
  Transmission Date: 20110219
  Serious: Yes (Other)
  Sender: FDA-Public Use
  Company Number: A0770955A

PATIENT
  Age: 46 Year
  Sex: Female

DRUGS (2)
  1. AVANDIA [Suspect]
     Dosage: 4MG PER DAY
     Route: 048
     Dates: start: 20050523, end: 20070913
  2. ROSIGLITAZONE MALEATE [Suspect]
     Route: 048
     Dates: start: 20030101, end: 20060101

REACTIONS (1)
  - MYOCARDIAL INFARCTION [None]
